FAERS Safety Report 21002241 (Version 1)
Quarter: 2022Q2

REPORT INFORMATION
  Report Type: Spontaneous
  Country: US (occurrence: US)
  Receive Date: 20220624
  Receipt Date: 20220624
  Transmission Date: 20220720
  Serious: Yes (Hospitalization)
  Sender: FDA-Public Use
  Company Number: US-ALLERGAN-2220360US

PATIENT
  Sex: Female

DRUGS (1)
  1. AVYCAZ [Suspect]
     Active Substance: AVIBACTAM SODIUM\CEFTAZIDIME
     Indication: Product used for unknown indication
     Dosage: 2.5 G, Q8HR

REACTIONS (3)
  - Aspiration joint [Unknown]
  - Arthritis infective [Unknown]
  - Pyrexia [Unknown]

NARRATIVE: CASE EVENT DATE: 20220531
